FAERS Safety Report 4823007-9 (Version None)
Quarter: 2005Q4

REPORT INFORMATION
  Report Type: 
  Country: None (occurrence: None)
  Receive Date: 20051108
  Receipt Date: 20051108
  Transmission Date: 20060501
  Serious: Yes (Hospitalization, Other)
  Sender: FDA-Public Use
  Company Number: None

PATIENT
  Sex: Male
  Weight: 111 kg

DRUGS (6)
  1. CYCLOPHOSPHAMIDE [Suspect]
     Indication: MULTIPLE MYELOMA
     Dosage: SEE IMAGE
     Dates: start: 20050503
  2. ACYCLOVIR [Concomitant]
  3. ATENOLOL [Concomitant]
  4. NEURONTIN [Concomitant]
  5. PROTONIX [Concomitant]
  6. MAGNESIUM [Concomitant]

REACTIONS (9)
  - ERYTHEMA MULTIFORME [None]
  - GRAFT VERSUS HOST DISEASE [None]
  - HEPATIC FUNCTION ABNORMAL [None]
  - LIVER DISORDER [None]
  - ORAL MUCOSAL DISORDER [None]
  - ORAL PAIN [None]
  - PHARYNGOLARYNGEAL PAIN [None]
  - RASH MACULO-PAPULAR [None]
  - SKIN EXFOLIATION [None]
